FAERS Safety Report 10075461 (Version 3)
Quarter: 2014Q2

REPORT INFORMATION
  Report Type: Spontaneous
  Country: US (occurrence: US)
  Receive Date: 20140414
  Receipt Date: 20140603
  Transmission Date: 20141212
  Serious: Yes (Other)
  Sender: FDA-Public Use
  Company Number: US-009507513-1404USA007087

PATIENT
  Age: 22 Year
  Sex: Female
  Weight: 74.83 kg

DRUGS (2)
  1. NEXPLANON [Suspect]
     Indication: CONTRACEPTION
     Dosage: LEFT ARM
     Route: 059
     Dates: start: 20130227, end: 20140414
  2. NEXPLANON [Suspect]
     Dosage: UNK
     Route: 059
     Dates: start: 20140414

REACTIONS (5)
  - Device breakage [Recovered/Resolved]
  - Adverse event [Recovered/Resolved]
  - Muscle spasms [Unknown]
  - Menorrhagia [Unknown]
  - Headache [Unknown]
